FAERS Safety Report 6663118-9 (Version None)
Quarter: 2010Q2

REPORT INFORMATION
  Report Type: 
  Country: None (occurrence: None)
  Receive Date: 20100401
  Receipt Date: 20100328
  Transmission Date: 20101027
  Serious: Yes (Other)
  Sender: FDA-Public Use
  Company Number: US-KINGPHARMUSA00001-K201000370

PATIENT
  Sex: Male
  Weight: 165.53 kg

DRUGS (5)
  1. SKELAXIN [Suspect]
     Indication: MUSCLE SPASMS
     Dosage: 800 MG, SINGLE
     Dates: start: 20100326, end: 20100326
  2. LEVOTHYROXINE SODIUM [Concomitant]
     Indication: THYROID DISORDER
     Dosage: 150 MCG, QD
  3. FLEXERIL [Concomitant]
     Indication: BACK DISORDER
     Dosage: UNK
     Dates: start: 20100301
  4. HYDROCODONE [Concomitant]
     Dosage: 5 MG, QD
     Dates: start: 20100301, end: 20100325
  5. HYDROCODONE [Concomitant]
     Dosage: 10 MG, QD
     Dates: start: 20100326

REACTIONS (2)
  - HALLUCINATION, VISUAL [None]
  - HYPOAESTHESIA [None]
